FAERS Safety Report 22226054 (Version 4)
Quarter: 2023Q2

REPORT INFORMATION
  Report Type: Spontaneous
  Country: US (occurrence: US)
  Receive Date: 20230419
  Receipt Date: 20230524
  Transmission Date: 20230722
  Serious: Yes (Hospitalization, Other)
  Sender: FDA-Public Use
  Company Number: US-UNITED THERAPEUTICS-UNT-2023-010396

PATIENT
  Age: 76 Year
  Sex: Female
  Weight: 82.086 kg

DRUGS (4)
  1. REMODULIN [Suspect]
     Active Substance: TREPROSTINIL
     Indication: Pulmonary arterial hypertension
     Dosage: 0.060 ?G/KG, CONTINUING
     Route: 041
  2. REMODULIN [Suspect]
     Active Substance: TREPROSTINIL
     Dosage: UNK, CONTINUING
     Route: 041
     Dates: start: 20170501
  3. ADEMPAS [Suspect]
     Active Substance: RIOCIGUAT
     Indication: Product used for unknown indication
     Dosage: UNK
     Route: 065
  4. COUMADIN [Concomitant]
     Active Substance: WARFARIN SODIUM
     Indication: Product used for unknown indication
     Dosage: UNK
     Route: 065

REACTIONS (16)
  - Incisional hernia [Unknown]
  - Pulmonary arterial hypertension [Not Recovered/Not Resolved]
  - Device infusion issue [Recovered/Resolved]
  - Presyncope [Recovered/Resolved]
  - Dyspepsia [Not Recovered/Not Resolved]
  - Weight increased [Recovered/Resolved]
  - Dyspnoea [Unknown]
  - Swelling [Unknown]
  - Product dose omission issue [Recovered/Resolved]
  - Device failure [Unknown]
  - Pain in extremity [Unknown]
  - Gait disturbance [Unknown]
  - Peripheral swelling [Unknown]
  - Breast swelling [Unknown]
  - Fluid retention [Unknown]
  - Somnolence [Unknown]

NARRATIVE: CASE EVENT DATE: 20230401
